FAERS Safety Report 5091934-6 (Version None)
Quarter: 2006Q3

REPORT INFORMATION
  Report Type: 
  Country: None (occurrence: None)
  Receive Date: 20060825
  Receipt Date: 20060814
  Transmission Date: 20061208
  Serious: Yes (Other)
  Sender: FDA-Public Use
  Company Number: VNL_0159_2006

PATIENT
  Age: 67 Year
  Sex: Male

DRUGS (7)
  1. APO-GO [Suspect]
     Indication: PARKINSON'S DISEASE
     Dosage: 3.5 MG/HR INFUSION SC
     Route: 058
     Dates: start: 20060101
  2. RAMIPRIL [Concomitant]
  3. AMIODARONE [Concomitant]
  4. BISOPROLOL FUMARATE [Concomitant]
  5. ALDACTONE [Concomitant]
  6. FUROSEMIDE [Concomitant]
  7. WARFARIN SODIUM [Concomitant]

REACTIONS (5)
  - CATHETER RELATED INFECTION [None]
  - INFUSION SITE ABSCESS [None]
  - INFUSION SITE ERYTHEMA [None]
  - INFUSION SITE NECROSIS [None]
  - WOUND SECRETION [None]
